FAERS Safety Report 6421379-5 (Version None)
Quarter: 2009Q4

REPORT INFORMATION
  Report Type: 
  Country: None (occurrence: None)
  Receive Date: 20091029
  Receipt Date: 20091029
  Transmission Date: 20100525
  Serious: Yes (Hospitalization)
  Sender: FDA-Public Use
  Company Number: None

PATIENT
  Age: 59 Year
  Sex: Male
  Weight: 94.3482 kg

DRUGS (2)
  1. ZIPSOR [Suspect]
     Indication: NECK PAIN
     Dosage: 25 MG 3/DAY ORAL
     Route: 048
     Dates: start: 20090928
  2. ZIPSOR [Suspect]

REACTIONS (4)
  - ENLARGED UVULA [None]
  - OROPHARYNGEAL PAIN [None]
  - PHARYNGEAL OEDEMA [None]
  - SWOLLEN TONGUE [None]
